FAERS Safety Report 5009950-9 (Version None)
Quarter: 2006Q2

REPORT INFORMATION
  Report Type: 
  Country: None (occurrence: None)
  Receive Date: 20060522
  Receipt Date: 20060505
  Transmission Date: 20061013
  Serious: Yes (Other)
  Sender: FDA-Public Use
  Company Number: L06-USA-01957-01

PATIENT
  Age: 43 Year
  Sex: Female

DRUGS (9)
  1. MEMANTINE HCL [Suspect]
     Indication: DEPRESSION
     Dosage: 10 MG QD
  2. RILUZOLE [Suspect]
     Indication: DEPRESSION
     Dosage: 50 MG BID
  3. RILUZOLE [Suspect]
     Indication: DEPRESSION
     Dosage: 50 MG QD
  4. RILUZOLE [Suspect]
     Indication: DEPRESSION
     Dosage: 150 MG QD
  5. BUPROPION [Suspect]
     Indication: DEPRESSION
     Dosage: 450 MG DAILY
  6. LITIHUM [Concomitant]
  7. AMOXAPINE [Concomitant]
  8. TIAGABINE HCL [Concomitant]
  9. DIAZEPAM [Concomitant]

REACTIONS (11)
  - AMNESIA [None]
  - CONSTRICTED AFFECT [None]
  - DRUG INTERACTION [None]
  - DYSPHORIA [None]
  - EMOTIONAL DISTRESS [None]
  - HALLUCINATION, VISUAL [None]
  - POVERTY OF SPEECH [None]
  - PSYCHOMOTOR RETARDATION [None]
  - SUICIDAL IDEATION [None]
  - THOUGHT BLOCKING [None]
  - URINARY TRACT INFECTION [None]
